FAERS Safety Report 14111915 (Version 1)
Quarter: 2017Q4

REPORT INFORMATION
  Report Type: Report from Study
  Country: GB (occurrence: GB)
  Receive Date: 20171020
  Receipt Date: 20171020
  Transmission Date: 20180321
  Serious: Yes (Other)
  Sender: FDA-Public Use
  Company Number: GB-UCBSA-2017041370

PATIENT
  Age: 52 Year
  Sex: Male

DRUGS (4)
  1. CARBIDOPA W/ENTACAPONE/LEVODOPA [Concomitant]
     Active Substance: CARBIDOPA\ENTACAPONE\LEVODOPA
     Indication: PRODUCT USED FOR UNKNOWN INDICATION
     Dosage: UNK
  2. ROTIGOTINE [Suspect]
     Active Substance: ROTIGOTINE
     Indication: PARKINSON^S DISEASE
     Dosage: UNK
  3. SELEGILINE [Concomitant]
     Active Substance: SELEGILINE
     Indication: PRODUCT USED FOR UNKNOWN INDICATION
  4. CARBIDOPA W/LEVODOPA [Concomitant]
     Active Substance: CARBIDOPA\LEVODOPA

REACTIONS (21)
  - Choking [Unknown]
  - Asthenia [Unknown]
  - Depressed mood [Unknown]
  - Middle insomnia [Unknown]
  - Constipation [Unknown]
  - Sleep talking [Unknown]
  - Dysphagia [Unknown]
  - Memory impairment [Unknown]
  - Pain [Unknown]
  - Disturbance in attention [Unknown]
  - Nocturia [Unknown]
  - Initial insomnia [Unknown]
  - Ageusia [Unknown]
  - Nightmare [Unknown]
  - Stress [Unknown]
  - Gastrointestinal motility disorder [Unknown]
  - Dizziness [Unknown]
  - Anosmia [Unknown]
  - Decreased interest [Unknown]
  - Sexual dysfunction [Unknown]
  - Musculoskeletal stiffness [Unknown]
